FAERS Safety Report 24765831 (Version 1)
Quarter: 2024Q4

REPORT INFORMATION
  Report Type: Spontaneous
  Country: US (occurrence: US)
  Receive Date: 20241223
  Receipt Date: 20241223
  Transmission Date: 20250115
  Serious: Yes (Death, Other)
  Sender: MERCK
  Company Number: US-009507513-2412USA007485

PATIENT
  Age: 65 Year
  Sex: Female

DRUGS (1)
  1. TEMODAR [Suspect]
     Active Substance: TEMOZOLOMIDE
     Indication: Glioblastoma multiforme
     Dosage: UNK
     Route: 048

REACTIONS (4)
  - Myelosuppression [Not Recovered/Not Resolved]
  - Aplastic anaemia [Fatal]
  - Thrombocytopenia [Fatal]
  - Neutropenia [Fatal]
